FAERS Safety Report 10220988 (Version 4)
Quarter: 2014Q3

REPORT INFORMATION
  Report Type: Report from Study
  Country: DE (occurrence: DE)
  Receive Date: 20140606
  Receipt Date: 20140725
  Transmission Date: 20150326
  Serious: Yes (Death, Hospitalization, Other)
  Sender: FDA-Public Use
  Company Number: DE-ROCHE-1413379

PATIENT
  Age: 52 Year
  Sex: Female
  Weight: 70 kg

DRUGS (9)
  1. CARBOPLATIN. [Suspect]
     Active Substance: CARBOPLATIN
     Route: 042
     Dates: start: 20130211, end: 20130211
  2. BEVACIZUMAB [Suspect]
     Active Substance: BEVACIZUMAB
     Route: 042
     Dates: start: 20130304, end: 20130304
  3. BEVACIZUMAB [Suspect]
     Active Substance: BEVACIZUMAB
     Route: 042
     Dates: start: 20121102, end: 20121102
  4. CARBOPLATIN. [Suspect]
     Active Substance: CARBOPLATIN
     Route: 042
     Dates: start: 20121228, end: 20121228
  5. PACLITAXEL. [Suspect]
     Active Substance: PACLITAXEL
     Indication: OVARIAN EPITHELIAL CANCER
     Dosage: 324-322 MG PER CYCLE ACCORDING TO PATIENT WEIGHT
     Route: 042
     Dates: start: 20120808, end: 20120808
  6. PACLITAXEL. [Suspect]
     Active Substance: PACLITAXEL
     Route: 042
     Dates: start: 20121228, end: 20121228
  7. BEVACIZUMAB [Suspect]
     Active Substance: BEVACIZUMAB
     Indication: OVARIAN EPITHELIAL CANCER
     Route: 042
     Dates: start: 20120831, end: 20120831
  8. CARBOPLATIN. [Suspect]
     Active Substance: CARBOPLATIN
     Indication: OVARIAN EPITHELIAL CANCER
     Route: 042
     Dates: start: 20120808, end: 20120808
  9. PACLITAXEL. [Suspect]
     Active Substance: PACLITAXEL
     Route: 042
     Dates: start: 20130211, end: 20130211

REACTIONS (3)
  - Acute hepatic failure [Fatal]
  - Anaemia [Recovered/Resolved]
  - Thrombocytopenia [Fatal]

NARRATIVE: CASE EVENT DATE: 20130104
